FAERS Safety Report 8359987-7 (Version None)
Quarter: 2012Q2

REPORT INFORMATION
  Report Type: 
  Country: None (occurrence: None)
  Receive Date: 20120515
  Receipt Date: 20120509
  Transmission Date: 20120825
  Serious: Yes (Death)
  Sender: FDA-Public Use
  Company Number: PHHY2012MX029741

PATIENT
  Sex: Male

DRUGS (1)
  1. DIOVAN HCT [Suspect]
     Indication: HYPERTENSION
     Dosage: 1 DF, Q12H
     Dates: start: 20120307

REACTIONS (2)
  - GASTRIC HAEMORRHAGE [None]
  - HYPOVOLAEMIC SHOCK [None]
